FAERS Safety Report 9965052 (Version 1)
Quarter: 2014Q1

REPORT INFORMATION
  Report Type: Report from Study
  Country: US (occurrence: US)
  Receive Date: 20140305
  Receipt Date: 20140305
  Transmission Date: 20141002
  Serious: No
  Sender: FDA-Public Use
  Company Number: US-ABBVIE-13P-163-1128155-00

PATIENT
  Age: 47 Year
  Sex: Female
  Weight: 136.2 kg

DRUGS (9)
  1. HUMIRA [Suspect]
     Indication: RHEUMATOID ARTHRITIS
     Dates: start: 201010, end: 201210
  2. HUMIRA [Suspect]
     Indication: RHEUMATOID ARTHRITIS
     Dates: start: 201210, end: 201306
  3. HUMIRA [Suspect]
     Dates: start: 201307
  4. LISINOPRIL [Concomitant]
     Indication: HYPERTENSION
  5. GLUCOPHAGE [Concomitant]
     Indication: TYPE 2 DIABETES MELLITUS
  6. FOLIC ACID [Concomitant]
     Indication: VITAMIN SUPPLEMENTATION
  7. ASPIRIN [Concomitant]
     Indication: RHEUMATOID ARTHRITIS
  8. METHOTREXATE [Concomitant]
     Indication: RHEUMATOID ARTHRITIS
     Dates: end: 201306
  9. METHOTREXATE [Concomitant]
     Dates: start: 201307

REACTIONS (2)
  - Vitamin D decreased [Not Recovered/Not Resolved]
  - Tooth infection [Recovered/Resolved]
